FAERS Safety Report 12826550 (Version 1)
Quarter: 2016Q4

REPORT INFORMATION
  Report Type: Spontaneous
  Country: JP (occurrence: JP)
  Receive Date: 20161007
  Receipt Date: 20161007
  Transmission Date: 20170207
  Serious: Yes (Hospitalization, Other)
  Sender: FDA-Public Use
  Company Number: JP-PFIZER INC-2016460594

PATIENT
  Age: 89 Year
  Sex: Male

DRUGS (2)
  1. TOVIAZ [Suspect]
     Active Substance: FESOTERODINE FUMARATE
     Dosage: 4 MG, DAILY
     Route: 048
     Dates: start: 20160914, end: 201609
  2. FLIVAS [Concomitant]
     Active Substance: NAFTOPIDIL
     Indication: BENIGN PROSTATIC HYPERPLASIA
     Dosage: 75 MG, DAILY
     Route: 048

REACTIONS (3)
  - Dizziness [Recovered/Resolved]
  - Constipation [Recovered/Resolved]
  - Cystitis [Unknown]

NARRATIVE: CASE EVENT DATE: 201609
